FAERS Safety Report 19253848 (Version 1)
Quarter: 2021Q2

REPORT INFORMATION
  Report Type: Spontaneous
  Country: US (occurrence: US)
  Receive Date: 20210513
  Receipt Date: 20210513
  Transmission Date: 20210717
  Serious: Yes (Other)
  Sender: FDA-Public Use
  Company Number: None

PATIENT
  Age: 65 Year
  Sex: Female
  Weight: 65.7 kg

DRUGS (1)
  1. TRUXIMA [Suspect]
     Active Substance: RITUXIMAB-ABBS

REACTIONS (4)
  - Nausea [None]
  - Blood pressure decreased [None]
  - Generalised tonic-clonic seizure [None]
  - Feeling cold [None]

NARRATIVE: CASE EVENT DATE: 20210513
